FAERS Safety Report 4290908-2 (Version None)
Quarter: 2004Q1

REPORT INFORMATION
  Report Type: 
  Country: None (occurrence: None)
  Receive Date: 20040206
  Receipt Date: 20040206
  Transmission Date: 20041129
  Serious: Yes (Hospitalization)
  Sender: FDA-Public Use
  Company Number: None

PATIENT
  Age: 78 Year
  Sex: Female

DRUGS (1)
  1. DIGOXIN [Suspect]
     Indication: CARDIAC FAILURE CONGESTIVE
     Dosage: 0.125 MG PO QD
     Route: 048

REACTIONS (6)
  - BRADYCARDIA [None]
  - DRUG TOXICITY [None]
  - NAUSEA [None]
  - NODAL RHYTHM [None]
  - OEDEMA PERIPHERAL [None]
  - VOMITING [None]
